FAERS Safety Report 14716772 (Version 1)
Quarter: 2018Q2

REPORT INFORMATION
  Report Type: Spontaneous
  Country: US (occurrence: US)
  Receive Date: 20180404
  Receipt Date: 20180404
  Transmission Date: 20180711
  Serious: No
  Sender: FDA-Public Use
  Company Number: US-TEVA-2018-US-876388

PATIENT
  Sex: Female

DRUGS (1)
  1. FENTANYL. [Suspect]
     Active Substance: FENTANYL
     Indication: PAIN
     Dosage: DOSE STRENGTH:  50MCG 5
     Route: 065

REACTIONS (6)
  - Vomiting [Unknown]
  - Feeding disorder [Unknown]
  - Chills [Unknown]
  - Withdrawal syndrome [Unknown]
  - Tremor [Unknown]
  - Malaise [Unknown]
